FAERS Safety Report 20515509 (Version 1)
Quarter: 2022Q1

REPORT INFORMATION
  Report Type: Spontaneous
  Country: US (occurrence: US)
  Receive Date: 20220224
  Receipt Date: 20220224
  Transmission Date: 20220423
  Serious: No
  Sender: FDA-Public Use
  Company Number: US-LANTHEUS-LMI-2021-01408

PATIENT

DRUGS (1)
  1. DEFINITY [Suspect]
     Active Substance: PERFLUTREN
     Indication: Stress echocardiogram
     Dosage: 4 MILLILITRE (DILUTED WITHIN A 10 ML SALINE SYRINGE)
     Route: 042
     Dates: start: 20211104, end: 20211104

REACTIONS (5)
  - Limb discomfort [Recovered/Resolved]
  - Pain in extremity [Recovered/Resolved]
  - Drug hypersensitivity [Recovered/Resolved]
  - Back pain [Recovered/Resolved]
  - Arthralgia [Recovered/Resolved]

NARRATIVE: CASE EVENT DATE: 20211104
